FAERS Safety Report 5450133-6 (Version None)
Quarter: 2007Q3

REPORT INFORMATION
  Report Type: 
  Country: None (occurrence: None)
  Receive Date: 20070912
  Receipt Date: 20070910
  Transmission Date: 20080115
  Serious: Yes (Other)
  Sender: FDA-Public Use
  Company Number: A0681003A

PATIENT
  Age: 24 Year
  Sex: Female

DRUGS (2)
  1. COMBIVIR [Suspect]
     Indication: HIV INFECTION
     Dosage: 900MG PER DAY
     Route: 048
     Dates: start: 20060406
  2. VIRACEPT [Suspect]
     Indication: HIV INFECTION
     Dosage: 2500MG PER DAY
     Route: 048
     Dates: start: 20060406

REACTIONS (7)
  - CHORIOAMNIONITIS [None]
  - DRUG EXPOSURE DURING PREGNANCY [None]
  - PREMATURE RUPTURE OF MEMBRANES [None]
  - PREMATURE SEPARATION OF PLACENTA [None]
  - STILLBIRTH [None]
  - UTERINE CONTRACTIONS ABNORMAL [None]
  - VAGINAL HAEMORRHAGE [None]
